FAERS Safety Report 10390602 (Version 2)
Quarter: 2014Q4

REPORT INFORMATION
  Report Type: Spontaneous
  Country: IT (occurrence: None)
  Receive Date: 20140814
  Receipt Date: 20141205
  Transmission Date: 20150528
  Serious: Yes (Hospitalization)
  Sender: FDA-Public Use
  Company Number: 2479496

PATIENT
  Age: 75 Year
  Sex: Male

DRUGS (14)
  1. CARBOPLATIN. [Suspect]
     Active Substance: CARBOPLATIN
     Indication: LUNG ADENOCARCINOMA
     Route: 042
     Dates: start: 20140711, end: 20140717
  2. MODURETIC 5-50 [Concomitant]
     Active Substance: AMILORIDE HYDROCHLORIDE\HYDROCHLOROTHIAZIDE
  3. ZYLORIC [Concomitant]
     Active Substance: ALLOPURINOL
  4. SEROQUEL [Concomitant]
     Active Substance: QUETIAPINE FUMARATE
  5. GEMCITABINE HYDROCHLORIDE. [Suspect]
     Active Substance: GEMCITABINE HYDROCHLORIDE
     Indication: LUNG ADENOCARCINOMA
     Route: 042
     Dates: start: 20140711, end: 20140717
  6. DEPALGOS [Concomitant]
     Active Substance: ACETAMINOPHEN\OXYCODONE HYDROCHLORIDE
  7. SOLDESAM [Concomitant]
     Active Substance: DEXAMETHASONE
  8. MOTILIUM [Concomitant]
     Active Substance: DOMPERIDONE
  9. MYCOSTATIN [Concomitant]
     Active Substance: NYSTATIN
  10. SELEPARINA [Concomitant]
     Active Substance: NADROPARIN CALCIUM
  11. NEBIVOLOL [Concomitant]
     Active Substance: NEBIVOLOL
  12. RANITIDINE [Concomitant]
     Active Substance: RANITIDINE\RANITIDINE HYDROCHLORIDE
  13. TICLOPIDINE [Concomitant]
     Active Substance: TICLOPIDINE
  14. ALIFLUS [Concomitant]
     Active Substance: FLUTICASONE PROPIONATE\SALMETEROL XINAFOATE

REACTIONS (5)
  - Thrombocytopenia [None]
  - Diarrhoea [None]
  - Pancytopenia [None]
  - Leukopenia [None]
  - Anaemia [None]

NARRATIVE: CASE EVENT DATE: 20140721
